FAERS Safety Report 23417537 (Version 1)
Quarter: 2024Q1

REPORT INFORMATION
  Report Type: Spontaneous
  Country: US (occurrence: None)
  Receive Date: 20240117
  Receipt Date: 20240117
  Transmission Date: 20240410
  Serious: Yes (Other)
  Sender: FDA-Public Use
  Company Number: None

PATIENT
  Age: 45 Year
  Sex: Female
  Weight: 108.41 kg

DRUGS (1)
  1. TEZSPIRE [Suspect]
     Active Substance: TEZEPELUMAB-EKKO
     Dosage: FREQUENCY : MONTHLY;?
     Route: 058
     Dates: start: 20231121, end: 20231226

REACTIONS (4)
  - Anaphylactic reaction [None]
  - Wheezing [None]
  - Throat tightness [None]
  - Vertigo [None]

NARRATIVE: CASE EVENT DATE: 20231226
